FAERS Safety Report 9817193 (Version 2)
Quarter: 2014Q1

REPORT INFORMATION
  Report Type: Spontaneous
  Country: US (occurrence: US)
  Receive Date: 20140114
  Receipt Date: 20140114
  Transmission Date: 20141002
  Serious: Yes (Death, Hospitalization, Other)
  Sender: FDA-Public Use
  Company Number: US-GILEAD-2013-0089758

PATIENT
  Sex: Female

DRUGS (13)
  1. LETAIRIS [Suspect]
     Indication: PULMONARY ARTERIAL HYPERTENSION
     Dosage: 10 MG, QD
     Route: 048
     Dates: start: 20130815, end: 20131118
  2. AMITRIPTYLINE [Concomitant]
  3. REMODULIN [Concomitant]
  4. DOCUSATE SODIUM [Concomitant]
  5. ADVAIR [Concomitant]
  6. LASIX                              /00032601/ [Concomitant]
  7. LANTUS [Concomitant]
  8. LEVOTHYROXINE [Concomitant]
  9. LOVASTATIN [Concomitant]
  10. MULTIVITAMIN                       /07504101/ [Concomitant]
  11. POTASSIUM [Concomitant]
  12. SPIRIVA [Concomitant]
  13. WARFARIN [Concomitant]

REACTIONS (2)
  - Death [Fatal]
  - Right ventricular failure [Unknown]
